FAERS Safety Report 10606783 (Version 1)
Quarter: 2014Q4

REPORT INFORMATION
  Report Type: Spontaneous
  Country: US (occurrence: None)
  Receive Date: 20141124
  Receipt Date: 20141124
  Transmission Date: 20150529
  Serious: Yes (Other)
  Sender: FDA-Public Use
  Company Number: None

PATIENT
  Age: 61 Year
  Sex: Female
  Weight: 63.5 kg

DRUGS (1)
  1. RIZATRIPTAN [Suspect]
     Active Substance: RIZATRIPTAN
     Indication: MIGRAINE
     Dosage: 1 TABLET ONSET OF MIGRAINE TAKEN BY MOUTH
     Route: 048
     Dates: start: 20141016, end: 20141016

REACTIONS (5)
  - Dizziness [None]
  - Fear [None]
  - Palpitations [None]
  - Angina pectoris [None]
  - Gait disturbance [None]

NARRATIVE: CASE EVENT DATE: 20141016
